FAERS Safety Report 6208877-4 (Version None)
Quarter: 2009Q2

REPORT INFORMATION
  Report Type: 
  Country: None (occurrence: None)
  Receive Date: 20090522
  Receipt Date: 20090123
  Transmission Date: 20091009
  Serious: No
  Sender: FDA-Public Use
  Company Number: 8041743

PATIENT
  Age: 35 Year
  Sex: Male
  Weight: 170.1 kg

DRUGS (2)
  1. CIMZIA [Suspect]
     Indication: CROHN'S DISEASE
     Dosage: 400 MG SC
     Route: 058
     Dates: start: 20080929
  2. AZULFIDINE EN-TABS [Concomitant]

REACTIONS (3)
  - NASAL CONGESTION [None]
  - RHINORRHOEA [None]
  - SNEEZING [None]
